FAERS Safety Report 9356412 (Version 3)
Quarter: 2014Q1

REPORT INFORMATION
  Report Type: Spontaneous
  Country: US (occurrence: US)
  Receive Date: 20130619
  Receipt Date: 20140121
  Transmission Date: 20141002
  Serious: Yes (Hospitalization)
  Sender: FDA-Public Use
  Company Number: US-B.I. PHARMACEUTICALS,INC./RIDGEFIELD-2013-BI-16853BP

PATIENT
  Age: 83 Year
  Sex: Male
  Weight: 88.45 kg

DRUGS (12)
  1. PRADAXA [Suspect]
     Indication: CEREBROVASCULAR ACCIDENT PROPHYLAXIS
     Dosage: 300 MG
     Route: 048
     Dates: start: 20120204, end: 20120216
  2. PRADAXA [Suspect]
     Indication: THROMBOSIS PROPHYLAXIS
  3. PRADAXA [Suspect]
     Indication: ATRIAL FIBRILLATION
  4. ASPIRIN [Concomitant]
     Dosage: 81 MG
     Route: 048
  5. FUROSEMIDE [Concomitant]
     Dosage: 40 MG
     Route: 048
  6. POTASSIUM CHLORIDE [Concomitant]
     Dosage: 20 MEQ
  7. CARVEDILOL [Concomitant]
     Route: 048
  8. LISINOPRIL [Concomitant]
     Dosage: 20 MG
     Route: 048
  9. LEVOTHYROXINE [Concomitant]
     Dosage: 75 MCG
     Route: 048
  10. SIMVASTATIN [Concomitant]
     Dosage: 20 MG
     Route: 048
  11. VITAMIN D [Concomitant]
     Dosage: 2000 U
     Route: 048
  12. FISH OIL [Concomitant]
     Dosage: 1000 MG

REACTIONS (2)
  - Gastrointestinal haemorrhage [Recovered/Resolved]
  - Coagulopathy [Recovered/Resolved]
